FAERS Safety Report 6140743-5 (Version None)
Quarter: 2009Q2

REPORT INFORMATION
  Report Type: 
  Country: None (occurrence: None)
  Receive Date: 20090402
  Receipt Date: 20090327
  Transmission Date: 20091009
  Serious: Yes (Other)
  Sender: FDA-Public Use
  Company Number: PHHY2009GB08866

PATIENT
  Age: 71 Year
  Sex: Male

DRUGS (7)
  1. ZOMETA [Suspect]
     Indication: METASTASES TO BONE
     Dosage: 4 MG, UNK
     Route: 042
     Dates: start: 20060301, end: 20080930
  2. ZOMETA [Suspect]
     Indication: PROSTATE CANCER
  3. GOSERELIN [Concomitant]
  4. LACTULOSE [Concomitant]
     Route: 048
  5. ACETAMINOPHEN W/ CODEINE [Concomitant]
     Dosage: PRN
     Route: 048
  6. CASODEX [Concomitant]
     Indication: PROSTATE CANCER
     Route: 048
  7. ZOLADEX [Concomitant]
     Dosage: 3 MONTHLY

REACTIONS (2)
  - OSTEONECROSIS [None]
  - TOOTH EXTRACTION [None]
